FAERS Safety Report 10244138 (Version 1)
Quarter: 2014Q2

REPORT INFORMATION
  Report Type: Spontaneous
  Country: AU (occurrence: None)
  Receive Date: 20140616
  Receipt Date: 20140616
  Transmission Date: 20141212
  Serious: Yes (Hospitalization)
  Sender: FDA-Public Use
  Company Number: AU-ALKEM-000611

PATIENT
  Age: 68 Year
  Sex: Female

DRUGS (8)
  1. AMLODIPINE [Suspect]
     Indication: HYPERTENSION
  2. METFORMIN [Suspect]
     Indication: TYPE 2 DIABETES MELLITUS
  3. INDAPAMIDE [Suspect]
     Indication: HYPERTENSION
  4. MELOXICAM [Suspect]
     Indication: PRODUCT USED FOR UNKNOWN INDICATION
  5. IRBESARTAN [Suspect]
     Indication: HYPERTENSION
  6. ISOPHANE INSULIN [Suspect]
     Indication: TYPE 2 DIABETES MELLITUS
  7. SODIUM PICOSULFATE [Suspect]
     Indication: PREOPERATIVE CARE
  8. GLICLAZIDE [Suspect]
     Indication: TYPE 2 DIABETES MELLITUS

REACTIONS (6)
  - Lactic acidosis [None]
  - Diarrhoea [None]
  - Dehydration [None]
  - Renal failure acute [None]
  - Large intestine polyp [None]
  - Metabolic acidosis [None]
